FAERS Safety Report 10159447 (Version 2)
Quarter: 2014Q2

REPORT INFORMATION
  Report Type: Spontaneous
  Country: US (occurrence: US)
  Receive Date: 20140508
  Receipt Date: 20140508
  Transmission Date: 20141212
  Serious: Yes (Disabling, Other)
  Sender: FDA-Public Use
  Company Number: US-BEH-2012032936

PATIENT
  Age: 56 Year
  Sex: Female
  Weight: 81 kg

DRUGS (24)
  1. HIZENTRA [Suspect]
     Indication: IMMUNODEFICIENCY COMMON VARIABLE
     Dosage: ??-SEP-2011
     Route: 058
  2. HIZENTRA [Suspect]
     Route: 058
  3. HIZENTRA [Suspect]
     Route: 058
  4. GAMMAGARD LIQUID [Suspect]
     Route: 058
  5. THYROID [Concomitant]
  6. ALLEGRA [Concomitant]
  7. PREVACID [Concomitant]
  8. VERAMYST [Concomitant]
  9. SINGULAIR [Concomitant]
     Route: 048
  10. PROVENTIL [Concomitant]
  11. PREDNISONE [Concomitant]
  12. HYDROCORTISONE [Concomitant]
  13. LUNESTA [Concomitant]
  14. FUROSEMIDE [Concomitant]
  15. MECLIZINE [Concomitant]
  16. PATADAY [Concomitant]
  17. VIVELLE [Concomitant]
  18. ALBUTEROL [Concomitant]
     Route: 055
  19. PROGESTERONE [Concomitant]
  20. IPRATROPIUM [Concomitant]
     Route: 055
  21. SALINE [Concomitant]
  22. CLARITIN [Concomitant]
     Route: 048
  23. FLOVENT [Concomitant]
  24. PATANASE [Concomitant]

REACTIONS (19)
  - Sinusitis [Recovered/Resolved]
  - Staphylococcal infection [Recovered/Resolved]
  - Asthma [Recovered/Resolved]
  - Tendonitis [Recovered/Resolved]
  - Pyrexia [Recovered/Resolved]
  - Chills [Recovered/Resolved]
  - Nausea [Recovered/Resolved]
  - Infusion site swelling [Recovered/Resolved]
  - Infusion site erythema [Recovered/Resolved]
  - Infusion site pruritus [Recovered/Resolved]
  - Oedema [Recovered/Resolved]
  - Headache [Recovered/Resolved]
  - Back pain [Recovered/Resolved]
  - Flank pain [Recovered/Resolved]
  - Fatigue [Recovered/Resolved]
  - Myalgia [Recovered/Resolved]
  - Malaise [Recovered/Resolved]
  - Pyrexia [Unknown]
  - Chills [Unknown]
